FAERS Safety Report 9581064 (Version 1)
Quarter: 2013Q3

REPORT INFORMATION
  Report Type: Spontaneous
  Country: US (occurrence: None)
  Receive Date: 20130916
  Receipt Date: 20130916
  Transmission Date: 20140515
  Serious: Yes (Other)
  Sender: FDA-Public Use
  Company Number: JPI-P-026055

PATIENT
  Age: 48 Year
  Sex: Female

DRUGS (6)
  1. XYREM (500 MILLIGRAM/MILLILITERS, SOLUTION) (SODIUM OXYBATE) [Suspect]
     Indication: FIBROMYALGIA
     Dosage: 2 GM, 2 IN 1 D
     Route: 048
     Dates: start: 20121002, end: 201210
  2. OXYCODONE [Concomitant]
  3. RIZATRIPTAN BENZOATE [Concomitant]
  4. PIOGLITAZONE HYDROCHLORIDE [Concomitant]
  5. MEMANTINE HYDROCHLORIDE [Concomitant]
  6. TOPIRAMATE [Concomitant]

REACTIONS (9)
  - Weight decreased [None]
  - Condition aggravated [None]
  - Muscle spasms [None]
  - Decreased appetite [None]
  - Asthenia [None]
  - Tremor [None]
  - Salivary hypersecretion [None]
  - Nausea [None]
  - Migraine [None]
